FAERS Safety Report 24449513 (Version 2)
Quarter: 2024Q4

REPORT INFORMATION
  Report Type: Spontaneous
  Country: US (occurrence: US)
  Receive Date: 20241017
  Receipt Date: 20241205
  Transmission Date: 20250114
  Serious: No
  Sender: CSL BEHRING
  Company Number: US-BEH-2024181486

PATIENT
  Age: 7 Year
  Sex: Male

DRUGS (4)
  1. IDELVION [Suspect]
     Active Substance: COAGULATION FACTOR IX RECOMBINANT HUMAN
     Indication: Factor IX deficiency
     Dosage: 1575 IU EVERY OTHER WEEK AND PRN (STRENGTH REPORTED AS 1000)
     Route: 042
     Dates: start: 201907
  2. IDELVION [Suspect]
     Active Substance: COAGULATION FACTOR IX RECOMBINANT HUMAN
     Indication: Factor IX deficiency
     Dosage: 1575 IU EVERY OTHER WEEK AND PRN (STRENGTH REPORTED AS 1000)
     Route: 042
     Dates: start: 201907
  3. IDELVION [Suspect]
     Active Substance: COAGULATION FACTOR IX RECOMBINANT HUMAN
     Dosage: 1575IU PRN
     Route: 042
     Dates: start: 201907
  4. IDELVION [Suspect]
     Active Substance: COAGULATION FACTOR IX RECOMBINANT HUMAN
     Dosage: 1575IU PRN
     Route: 042
     Dates: start: 201907

REACTIONS (4)
  - Mouth haemorrhage [Unknown]
  - Foreign body in gastrointestinal tract [Unknown]
  - Fall [Unknown]
  - Tooth injury [Unknown]

NARRATIVE: CASE EVENT DATE: 20240906
